FAERS Safety Report 4576582-6 (Version None)
Quarter: 2005Q1

REPORT INFORMATION
  Report Type: 
  Country: None (occurrence: None)
  Receive Date: 20050119
  Receipt Date: 20041007
  Transmission Date: 20050727
  Serious: Yes (Hospitalization)
  Sender: FDA-Public Use
  Company Number: A03200403412

PATIENT
  Age: 75 Year
  Sex: Male
  Weight: 66.2252 kg

DRUGS (2)
  1. PLAVIX [Suspect]
     Indication: ISCHAEMIC STROKE
     Dosage: 75 MG QD - ORAL
     Route: 048
     Dates: start: 19990101, end: 20021201
  2. INSULIN [Concomitant]

REACTIONS (2)
  - DRUG INEFFECTIVE [None]
  - TRANSIENT ISCHAEMIC ATTACK [None]
